FAERS Safety Report 12542098 (Version 1)
Quarter: 2016Q3

REPORT INFORMATION
  Report Type: Report from Study
  Country: DE (occurrence: DE)
  Receive Date: 20160708
  Receipt Date: 20160708
  Transmission Date: 20161109
  Serious: Yes (Hospitalization)
  Sender: FDA-Public Use
  Company Number: PHHO2012DE022140

PATIENT
  Age: 38 Year
  Sex: Female
  Weight: 117 kg

DRUGS (9)
  1. PASPERTIN [Concomitant]
     Active Substance: METOCLOPRAMIDE HYDROCHLORIDE
     Indication: NAUSEA
     Dosage: 20 DF, QID
     Route: 048
     Dates: start: 20120724, end: 20120727
  2. DABRAFENIB [Suspect]
     Active Substance: DABRAFENIB
     Indication: MALIGNANT MELANOMA
     Dosage: 150 MG, BID
     Route: 048
     Dates: start: 20120629, end: 20120722
  3. DABRAFENIB [Suspect]
     Active Substance: DABRAFENIB
     Dosage: 300 MG, UNK
     Route: 048
     Dates: start: 20120731
  4. TRAMETINIB [Suspect]
     Active Substance: TRAMETINIB
     Indication: MALIGNANT MELANOMA
     Dosage: 2 MG, QD
     Route: 048
     Dates: start: 20120629, end: 20120723
  5. TRAMETINIB [Suspect]
     Active Substance: TRAMETINIB
     Dosage: 2 MG, UNK
     Route: 048
     Dates: start: 20120731
  6. TRAMAL [Concomitant]
     Active Substance: TRAMADOL
     Indication: HEADACHE
     Dosage: 100 MG, BID
     Route: 048
     Dates: start: 20120725, end: 20120726
  7. DABRAFENIB [Suspect]
     Active Substance: DABRAFENIB
     Dosage: 150
     Route: 048
     Dates: start: 20120723, end: 20120723
  8. FRAXIPARINE [Concomitant]
     Active Substance: NADROPARIN CALCIUM
     Indication: THROMBOSIS PROPHYLAXIS
     Dosage: 0.4 ML, QD
     Route: 058
     Dates: start: 20120723, end: 20120727
  9. FRAXIPARINE [Concomitant]
     Active Substance: NADROPARIN CALCIUM
     Dosage: 03 UNK, UNK
     Route: 058
     Dates: start: 20120728

REACTIONS (1)
  - Pyrexia [Recovered/Resolved]

NARRATIVE: CASE EVENT DATE: 20120722
